FAERS Safety Report 6058344-6 (Version None)
Quarter: 2009Q1

REPORT INFORMATION
  Report Type: 
  Country: None (occurrence: None)
  Receive Date: 20090127
  Receipt Date: 20090116
  Transmission Date: 20090719
  Serious: Yes (Life-Threatening, Hospitalization)
  Sender: FDA-Public Use
  Company Number: GXKR2009GB00882

PATIENT
  Sex: Female
  Weight: 1 kg

DRUGS (2)
  1. GEMCITABINE [Suspect]
     Dosage: UNK, TRAMSPLACENTAL
     Route: 064
  2. CARBOPLATIN [Suspect]
     Dosage: , TRANSPLACENTAL
     Route: 064

REACTIONS (8)
  - ANAEMIA NEONATAL [None]
  - CAESAREAN SECTION [None]
  - DRUG EXPOSURE DURING PREGNANCY [None]
  - FOETAL-MATERNAL HAEMORRHAGE [None]
  - LUNG CONSOLIDATION [None]
  - LUNG DISORDER [None]
  - PREMATURE BABY [None]
  - STAPHYLOCOCCAL SEPSIS [None]
